FAERS Safety Report 9292974 (Version 2)
Quarter: 2013Q2

REPORT INFORMATION
  Report Type: Spontaneous
  Country: US (occurrence: US)
  Receive Date: 20130516
  Receipt Date: 20130626
  Transmission Date: 20140414
  Serious: Yes (Other)
  Sender: FDA-Public Use
  Company Number: US-PFIZER INC-2013150239

PATIENT
  Age: 74 Year
  Sex: Female
  Weight: 86.17 kg

DRUGS (2)
  1. LIPITOR [Suspect]
     Indication: BLOOD CHOLESTEROL INCREASED
     Dosage: 80 MG, DAILY
     Route: 048
  2. DETROL LA [Concomitant]
     Dosage: 4 MG, UNK

REACTIONS (4)
  - Cataract [Unknown]
  - Joint injury [Unknown]
  - Dizziness [Unknown]
  - Vision blurred [Unknown]
